FAERS Safety Report 12387941 (Version 1)
Quarter: 2016Q2

REPORT INFORMATION
  Report Type: Spontaneous
  Country: GB (occurrence: GB)
  Receive Date: 20160520
  Receipt Date: 20160520
  Transmission Date: 20160815
  Serious: Yes (Hospitalization)
  Sender: FDA-Public Use
  Company Number: GB-ASTRAZENECA-2016SE52568

PATIENT
  Age: 53 Year
  Sex: Female
  Weight: 98.1 kg

DRUGS (1)
  1. DAPAGLIFLOZIN [Suspect]
     Active Substance: DAPAGLIFLOZIN
     Indication: INSULIN-REQUIRING TYPE 2 DIABETES MELLITUS
     Route: 048
     Dates: start: 20150728, end: 20151230

REACTIONS (2)
  - Urosepsis [Recovered/Resolved]
  - Contraindicated drug administered [Unknown]

NARRATIVE: CASE EVENT DATE: 20151124
